FAERS Safety Report 4893391-9 (Version None)
Quarter: 2006Q1

REPORT INFORMATION
  Report Type: 
  Country: None (occurrence: None)
  Receive Date: 20060127
  Receipt Date: 20060110
  Transmission Date: 20060701
  Serious: Yes (Other)
  Sender: FDA-Public Use
  Company Number: KR-AVENTIS-200610356GDDC

PATIENT
  Age: 57 Year
  Sex: Male

DRUGS (2)
  1. METRONIDAZOLE [Suspect]
     Indication: COMA HEPATIC
     Route: 048
  2. LAMIVUDINE [Concomitant]
     Indication: HEPATITIS

REACTIONS (4)
  - ENCEPHALOPATHY [None]
  - HALLUCINATIONS, MIXED [None]
  - PERSECUTORY DELUSION [None]
  - PSYCHOTIC DISORDER [None]
